FAERS Safety Report 4730549-3 (Version None)
Quarter: 2005Q3

REPORT INFORMATION
  Report Type: 
  Country: None (occurrence: None)
  Receive Date: 20050725
  Receipt Date: 20050216
  Transmission Date: 20060218
  Serious: No
  Sender: FDA-Public Use
  Company Number: USA050290997

PATIENT
  Age: 50 Year
  Sex: Female
  Weight: 73 kg

DRUGS (6)
  1. STRATTERA [Suspect]
     Indication: ATTENTION DEFICIT/HYPERACTIVITY DISORDER
     Dosage: 40 MG DAY
     Dates: start: 20040101, end: 20041201
  2. VERAPAMIL [Concomitant]
  3. DEPAKOTE [Concomitant]
  4. AMITRIPTYLINE [Concomitant]
  5. XANAX (ALPRAZOLAM DUM) [Concomitant]
  6. FLUOXETINE [Concomitant]

REACTIONS (1)
  - LOWER LIMB FRACTURE [None]
